FAERS Safety Report 5674905-8 (Version None)
Quarter: 2008Q1

REPORT INFORMATION
  Report Type: 
  Country: None (occurrence: None)
  Receive Date: 20080320
  Receipt Date: 20080312
  Transmission Date: 20080703
  Serious: Yes (Other)
  Sender: FDA-Public Use
  Company Number: BE-ROCHE-552783

PATIENT
  Age: 70 Year
  Sex: Male

DRUGS (2)
  1. ROCEPHIN [Suspect]
     Indication: PROPHYLAXIS
     Route: 042
     Dates: start: 20080301, end: 20080301
  2. ROCEPHIN [Suspect]
     Route: 042

REACTIONS (1)
  - BRADYCARDIA [None]
